FAERS Safety Report 9381448 (Version 1)
Quarter: 2013Q3

REPORT INFORMATION
  Report Type: Report from Study
  Country: AR (occurrence: AR)
  Receive Date: 20130703
  Receipt Date: 20130703
  Transmission Date: 20140515
  Serious: Yes (Other)
  Sender: FDA-Public Use
  Company Number: PHHY2013AR068805

PATIENT
  Sex: Female

DRUGS (1)
  1. EXELON [Suspect]
     Indication: COGNITIVE DISORDER
     Dosage: 1 DF, QD
     Route: 048

REACTIONS (4)
  - Schizophrenia [Not Recovered/Not Resolved]
  - Panic attack [Not Recovered/Not Resolved]
  - Self injurious behaviour [Not Recovered/Not Resolved]
  - Physical assault [Not Recovered/Not Resolved]
